FAERS Safety Report 5889189-5 (Version None)
Quarter: 2008Q3

REPORT INFORMATION
  Report Type: 
  Country: None (occurrence: None)
  Receive Date: 20080919
  Receipt Date: 20080907
  Transmission Date: 20090109
  Serious: Yes (Hospitalization)
  Sender: FDA-Public Use
  Company Number: PHHO2008DE10785

PATIENT
  Sex: Female
  Weight: 56 kg

DRUGS (5)
  1. RAD 666 RAD+TAB [Suspect]
     Indication: RENAL TRANSPLANT
     Dosage: 0.75 MG, BID
     Route: 048
  2. RAD 666 RAD+TAB [Suspect]
     Dosage: 1 MG, BID
     Route: 048
     Dates: start: 20080901
  3. MYFORTIC [Suspect]
     Indication: RENAL TRANSPLANT
     Dosage: 720 MG, BID
     Route: 048
  4. MYFORTIC [Suspect]
     Dosage: 360 MG, BID
  5. PANTOPRAZOLE SODIUM [Concomitant]

REACTIONS (2)
  - FEBRILE NEUTROPENIA [None]
  - LEUKOPENIA [None]
